FAERS Safety Report 5139484-2 (Version None)
Quarter: 2006Q4

REPORT INFORMATION
  Report Type: 
  Country: None (occurrence: None)
  Receive Date: 20061024
  Receipt Date: 20061012
  Transmission Date: 20070319
  Serious: Yes (Hospitalization)
  Sender: FDA-Public Use
  Company Number: 2006-02647

PATIENT
  Age: 60 Year
  Sex: Female

DRUGS (4)
  1. VELCADE [Suspect]
     Indication: NON-HODGKIN'S LYMPHOMA
     Dates: start: 20060425, end: 20060814
  2. PREDNISONE [Suspect]
     Indication: NON-HODGKIN'S LYMPHOMA
     Dates: start: 20060425, end: 20060814
  3. CYCLOPHOSPHAMIDE [Suspect]
     Indication: NON-HODGKIN'S LYMPHOMA
     Dates: start: 20060425, end: 20060814
  4. RITUXIMAB (RITUXIMAB) SOLUTION [Suspect]
     Indication: NON-HODGKIN'S LYMPHOMA
     Dates: start: 20060425, end: 20060814

REACTIONS (3)
  - INFECTION [None]
  - PNEUMONIA [None]
  - SINUS TACHYCARDIA [None]
